FAERS Safety Report 9849351 (Version 2)
Quarter: 2014Q1

REPORT INFORMATION
  Report Type: Spontaneous
  Country: US (occurrence: US)
  Receive Date: 20140128
  Receipt Date: 20140204
  Transmission Date: 20141002
  Serious: Yes (Other)
  Sender: FDA-Public Use
  Company Number: US-PURDUE-USA-2014-0110623

PATIENT
  Age: 72 Year
  Sex: Female

DRUGS (2)
  1. BUTRANS [Suspect]
     Indication: PAIN IN EXTREMITY
     Dosage: 5 MCG/HR, WEEKLY
     Route: 062
     Dates: start: 20140116, end: 20140118
  2. BUTRANS [Suspect]
     Indication: BACK PAIN

REACTIONS (9)
  - Medical device complication [Recovered/Resolved]
  - Application site pruritus [Recovered/Resolved]
  - Nausea [Recovered/Resolved]
  - Headache [Recovered/Resolved]
  - Abdominal pain upper [Recovered/Resolved]
  - Application site pain [Unknown]
  - Dizziness [Unknown]
  - Asthenia [Unknown]
  - Anxiety [Unknown]
